FAERS Safety Report 14916087 (Version 1)
Quarter: 2018Q2

REPORT INFORMATION
  Report Type: Spontaneous
  Country: US (occurrence: US)
  Receive Date: 20180518
  Receipt Date: 20180518
  Transmission Date: 20180711
  Serious: No
  Sender: FDA-Public Use
  Company Number: US-VIIV HEALTHCARE LIMITED-US2018GSK089309

PATIENT
  Sex: Male

DRUGS (1)
  1. TRIZIVIR [Suspect]
     Active Substance: ABACAVIR SULFATE\LAMIVUDINE\ZIDOVUDINE
     Indication: HIV INFECTION
     Dosage: 300/150/300 MG
     Route: 048
     Dates: start: 20161104

REACTIONS (2)
  - Lymphadenopathy [Unknown]
  - Malaise [Unknown]
